FAERS Safety Report 15933121 (Version 1)
Quarter: 2019Q1

REPORT INFORMATION
  Report Type: Spontaneous
  Country: US (occurrence: US)
  Receive Date: 20190207
  Receipt Date: 20190207
  Transmission Date: 20190417
  Serious: Yes (Life-Threatening, Hospitalization)
  Sender: FDA-Public Use
  Company Number: US-MYLANLABS-2018M1034332

PATIENT
  Age: 55 Year
  Sex: Male

DRUGS (1)
  1. HEPARIN [Suspect]
     Active Substance: HEPARIN SODIUM
     Indication: CARDIAC VENTRICULAR THROMBOSIS
     Route: 065

REACTIONS (14)
  - Deep vein thrombosis [Unknown]
  - Blood pressure decreased [Unknown]
  - Haemolysis [Unknown]
  - Anaemia [Unknown]
  - Heparin-induced thrombocytopenia [Recovered/Resolved]
  - Thrombosis in device [Unknown]
  - Paraesthesia [Recovered/Resolved]
  - Haemorrhage [Recovered/Resolved]
  - Hypoaesthesia [Recovered/Resolved]
  - Coagulopathy [Unknown]
  - Cardiac failure [Recovered/Resolved]
  - Acute kidney injury [Recovered/Resolved]
  - Pulmonary embolism [Recovered/Resolved]
  - Oxygen saturation decreased [Unknown]
